FAERS Safety Report 12375079 (Version 1)
Quarter: 2016Q2

REPORT INFORMATION
  Report Type: Spontaneous
  Country: KR (occurrence: KR)
  Receive Date: 20160517
  Receipt Date: 20160517
  Transmission Date: 20160815
  Serious: Yes (Hospitalization)
  Sender: FDA-Public Use
  Company Number: KR-MYLANLABS-2016M1020356

PATIENT

DRUGS (4)
  1. LINEZOLID. [Suspect]
     Active Substance: LINEZOLID
     Indication: STAPHYLOCOCCAL INFECTION
     Route: 042
  2. MEMANTINE. [Concomitant]
     Active Substance: MEMANTINE
     Route: 065
  3. BUSPIRONE [Concomitant]
     Active Substance: BUSPIRONE HYDROCHLORIDE
     Route: 065
  4. CILOSTAZOL. [Concomitant]
     Active Substance: CILOSTAZOL
     Route: 065

REACTIONS (3)
  - Inappropriate antidiuretic hormone secretion [Unknown]
  - Bone marrow failure [Unknown]
  - Hyponatraemia [Recovered/Resolved]
